FAERS Safety Report 16876506 (Version 1)
Quarter: 2019Q3

REPORT INFORMATION
  Report Type: Spontaneous
  Country: US (occurrence: US)
  Receive Date: 20190807
  Receipt Date: 20190807
  Transmission Date: 20191005
  Serious: Yes (Hospitalization)
  Sender: FDA-Public Use
  Company Number: None

PATIENT
  Age: 65 Year
  Sex: Male
  Weight: 84 kg

DRUGS (2)
  1. DOXORUBICIN [Suspect]
     Active Substance: DOXORUBICIN
     Indication: CHEMOTHERAPY
     Route: 042
     Dates: start: 20190327, end: 20190404
  2. DOXORUBICIN [Suspect]
     Active Substance: DOXORUBICIN
     Route: 042

REACTIONS (3)
  - Thrombocytopenia [None]
  - Febrile neutropenia [None]
  - Leukopenia [None]

NARRATIVE: CASE EVENT DATE: 20190405
